FAERS Safety Report 25952366 (Version 1)
Quarter: 2025Q4

REPORT INFORMATION
  Report Type: Spontaneous
  Country: EU (occurrence: EU)
  Receive Date: 20251023
  Receipt Date: 20251023
  Transmission Date: 20260119
  Serious: Yes (Hospitalization, Other)
  Sender: BAXTER
  Company Number: None

PATIENT
  Age: 73 Year
  Sex: Female
  Weight: 62.4 kg

DRUGS (4)
  1. CYCLOPHOSPHAMIDE [Suspect]
     Active Substance: CYCLOPHOSPHAMIDE
     Indication: T-cell lymphoma
     Dosage: 750 MG/M2, EVERY 3 WK
     Route: 042
     Dates: start: 20250328, end: 20250717
  2. DOXORUBICIN [Suspect]
     Active Substance: DOXORUBICIN
     Indication: T-cell lymphoma
     Dosage: 50 MG/M2, EVERY 3 WK (STRENGTH: 2 MG/ML)
     Route: 041
     Dates: start: 20250328, end: 20250717
  3. VINCRISTINE [Suspect]
     Active Substance: VINCRISTINE
     Indication: T-cell lymphoma
     Dosage: 1.4 MG/M2, EVERY 3 WK (STRENGTH: 2MG/2 ML AND MANUFACTURER: HOSPIRA)
     Route: 042
     Dates: start: 20250328, end: 20250717
  4. PREDNISONE [Suspect]
     Active Substance: PREDNISONE
     Indication: T-cell lymphoma
     Dosage: 40 MG/M2, EVERY 3 WK
     Route: 042
     Dates: start: 20250328, end: 20250717

REACTIONS (1)
  - Cardiac dysfunction [Recovering/Resolving]

NARRATIVE: CASE EVENT DATE: 20250825
